FAERS Safety Report 8392040 (Version 2)
Quarter: 2013Q2

REPORT INFORMATION
  Report Type: Spontaneous
  Country: FR (occurrence: FR)
  Receive Date: 20120206
  Receipt Date: 20130507
  Transmission Date: 20140414
  Serious: Yes (Disabling)
  Sender: FDA-Public Use
  Company Number: FR-ASTELLAS-2012EU000803

PATIENT
  Age: 47 Year
  Sex: Male
  Weight: 100 kg

DRUGS (5)
  1. PROGRAF [Suspect]
     Indication: LIVER TRANSPLANT
     Dosage: 3 MG, UNKNOWN/D
     Route: 065
  2. PROGRAF [Suspect]
     Dosage: 2 MG, UNKNOWN/D
     Route: 065
  3. PROGRAF [Suspect]
     Dosage: 2 MG, UNKNOWN/D
     Route: 065
  4. RENITEC                            /00574902/ [Concomitant]
     Dosage: UNK
     Route: 065
  5. AMLOR [Concomitant]
     Dosage: UNK
     Route: 065

REACTIONS (1)
  - Hypertension [Not Recovered/Not Resolved]
